FAERS Safety Report 13665356 (Version 6)
Quarter: 2017Q3

REPORT INFORMATION
  Report Type: Report from Study
  Country: US (occurrence: BR)
  Receive Date: 20170619
  Receipt Date: 20170906
  Transmission Date: 20171127
  Serious: Yes (Other)
  Sender: FDA-Public Use
  Company Number: US-SUNOVION-2017SUN002597

PATIENT
  Sex: Male
  Weight: 79 kg

DRUGS (10)
  1. INSULIN [Concomitant]
     Active Substance: INSULIN NOS
     Dosage: 25 OT, UNK
  2. GLYCOPYRROLATE. [Suspect]
     Active Substance: GLYCOPYRROLATE
     Indication: CHRONIC OBSTRUCTIVE PULMONARY DISEASE
     Dosage: .05 MG, QD
     Route: 055
     Dates: start: 201602
  3. DIOVAN [Suspect]
     Active Substance: VALSARTAN
     Indication: RENAL DISORDER
     Dosage: 1 DF (80 MG), QD; REGIMEN #1
     Route: 048
     Dates: start: 201304
  4. GALVUS [Suspect]
     Active Substance: VILDAGLIPTIN
     Indication: TYPE 2 DIABETES MELLITUS
  5. INSULIN [Concomitant]
     Active Substance: INSULIN NOS
     Dosage: 28 MG, UNK
  6. ALPRAZOLAM. [Concomitant]
     Active Substance: ALPRAZOLAM
     Dosage: 1 MG, UNK
  7. NPH INSULIN [Concomitant]
     Active Substance: INSULIN BEEF
     Dosage: UNK
     Dates: start: 1990
  8. DIOVAN [Suspect]
     Active Substance: VALSARTAN
     Dosage: 1 DF, QD; REGIMEN #2
     Route: 048
  9. GALVUS [Suspect]
     Active Substance: VILDAGLIPTIN
     Indication: BLOOD GLUCOSE ABNORMAL
     Dosage: 1 DF, QD (1 IN THE MORNING RIGHT AFTER BREAKFAST); ORAL
     Route: 048
     Dates: start: 2014
  10. DIOVAN HCT [Suspect]
     Active Substance: HYDROCHLOROTHIAZIDE\VALSARTAN
     Indication: RENAL DISORDER
     Dosage: 1 DF, QD (BEFORE BREAKFAST); ORAL
     Route: 048
     Dates: start: 201304

REACTIONS (13)
  - Weight increased [Recovering/Resolving]
  - Blood glucose increased [Recovered/Resolved]
  - Chronic obstructive pulmonary disease [Unknown]
  - Urinary tract disorder [Recovering/Resolving]
  - Weight decreased [Recovering/Resolving]
  - Anxiety [Recovered/Resolved]
  - Cerebrovascular accident [Unknown]
  - Fatigue [Unknown]
  - Drug intolerance [Unknown]
  - Product use in unapproved indication [Unknown]
  - Urine output increased [Recovered/Resolved]
  - Aortic aneurysm [Not Recovered/Not Resolved]
  - Prostatic specific antigen abnormal [Unknown]

NARRATIVE: CASE EVENT DATE: 2013
